FAERS Safety Report 6678909-8 (Version None)
Quarter: 2010Q2

REPORT INFORMATION
  Report Type: 
  Country: None (occurrence: None)
  Receive Date: 20100413
  Receipt Date: 20100401
  Transmission Date: 20101027
  Serious: Yes (Other)
  Sender: FDA-Public Use
  Company Number: CA-PFIZER INC-2010017676

PATIENT
  Age: 62 Year
  Sex: Female
  Weight: 88.88 kg

DRUGS (9)
  1. LYRICA [Suspect]
     Indication: FIBROMYALGIA
     Dosage: 75 MG, 3X/DAY
     Dates: start: 20070601, end: 20070801
  2. LYRICA [Suspect]
     Indication: SLEEP DISORDER DUE TO A GENERAL MEDICAL CONDITION
  3. EZETROL [Concomitant]
     Indication: BLOOD CHOLESTEROL
     Dosage: 10 MG, 1X/DAY
     Dates: start: 20100101
  4. SIMVASTATIN [Concomitant]
     Indication: BLOOD CHOLESTEROL
     Dosage: 40 MG, 1X/DAY
  5. ENALAPRIL [Concomitant]
     Indication: BLOOD PRESSURE
     Dosage: 10 MG, 1X/DAY
  6. ATENOLOL [Concomitant]
     Indication: BLOOD PRESSURE
     Dosage: 100 MG, 1X/DAY
  7. ASPIRIN [Concomitant]
     Dosage: 81 MG, 1X/DAY
  8. MULTI-VITAMINS [Concomitant]
     Dosage: UNK
  9. CALCIUM [Concomitant]
     Dosage: 500 MG, 1X/DAY

REACTIONS (4)
  - JOINT SWELLING [None]
  - OEDEMA PERIPHERAL [None]
  - PAIN [None]
  - WEIGHT INCREASED [None]
